FAERS Safety Report 23867529 (Version 1)
Quarter: 2024Q2

REPORT INFORMATION
  Report Type: Spontaneous
  Country: US (occurrence: None)
  Receive Date: 20240516
  Receipt Date: 20240516
  Transmission Date: 20240716
  Serious: No
  Sender: FDA-Public Use
  Company Number: None

PATIENT
  Sex: Female
  Weight: 25.85 kg

DRUGS (2)
  1. METHYLPHENIDATE [Suspect]
     Active Substance: METHYLPHENIDATE
     Indication: Attention deficit hyperactivity disorder
  2. LISDEXAMFETAMINE [Suspect]
     Active Substance: LISDEXAMFETAMINE

REACTIONS (3)
  - Emotional disorder [None]
  - Decreased appetite [None]
  - Educational problem [None]
